FAERS Safety Report 13915086 (Version 1)
Quarter: 2017Q3

REPORT INFORMATION
  Report Type: Report from Study
  Country: US (occurrence: US)
  Receive Date: 20170829
  Receipt Date: 20170829
  Transmission Date: 20171127
  Serious: Yes (Other)
  Sender: FDA-Public Use
  Company Number: US-EISAI MEDICAL RESEARCH-EC-2016-020422

PATIENT
  Sex: Male
  Weight: 73 kg

DRUGS (9)
  1. LENVIMA [Suspect]
     Active Substance: LENVATINIB
     Indication: RENAL CELL CARCINOMA
     Route: 048
     Dates: start: 20160908
  2. AFINITOR [Concomitant]
     Active Substance: EVEROLIMUS
  3. ATENOLOL. [Concomitant]
     Active Substance: ATENOLOL
  4. SYNTHROID [Concomitant]
     Active Substance: LEVOTHYROXINE SODIUM
  5. MVI [Concomitant]
     Active Substance: VITAMINS
  6. PLAQUENIL [Concomitant]
     Active Substance: HYDROXYCHLOROQUINE SULFATE
  7. LEVOXYL [Concomitant]
     Active Substance: LEVOTHYROXINE SODIUM
  8. LENVIMA [Suspect]
     Active Substance: LENVATINIB
     Route: 048
     Dates: start: 20170112, end: 2017
  9. FISH OIL [Concomitant]
     Active Substance: FISH OIL

REACTIONS (6)
  - Diarrhoea [Unknown]
  - Cerebrovascular accident [Unknown]
  - Malignant neoplasm progression [Unknown]
  - Nausea [Unknown]
  - Fatigue [Unknown]
  - Dysphonia [Unknown]

NARRATIVE: CASE EVENT DATE: 2016
